FAERS Safety Report 9444882 (Version 1)
Quarter: 2013Q3

REPORT INFORMATION
  Report Type: Spontaneous
  Country: IT (occurrence: IT)
  Receive Date: 20130807
  Receipt Date: 20130807
  Transmission Date: 20140515
  Serious: Yes (Other)
  Sender: FDA-Public Use
  Company Number: IT-SANOFI-AVENTIS-2013SA076245

PATIENT
  Age: 1 Year
  Sex: Male
  Weight: 7 kg

DRUGS (5)
  1. FERLIXIT [Suspect]
     Indication: IRON DEFICIENCY ANAEMIA
     Route: 042
     Dates: start: 20130722, end: 20130722
  2. COLESTYRAMINE [Concomitant]
     Indication: DIARRHOEA
     Route: 048
  3. URSODEOXYCHOLIC ACID [Concomitant]
     Indication: PARENTERAL NUTRITION
     Route: 048
  4. CHLORPHENIRAMINE [Concomitant]
     Indication: PREMEDICATION
     Route: 042
  5. BETAMETHASONE [Concomitant]
     Indication: PREMEDICATION
     Route: 042

REACTIONS (3)
  - Retching [Recovered/Resolved]
  - Shock [Recovered/Resolved]
  - Abdominal pain [Recovered/Resolved]
